FAERS Safety Report 6017538-6 (Version None)
Quarter: 2008Q4

REPORT INFORMATION
  Report Type: 
  Country: None (occurrence: None)
  Receive Date: 20081219
  Receipt Date: 20081202
  Transmission Date: 20090506
  Serious: Yes (Other)
  Sender: FDA-Public Use
  Company Number: 2008S1021495

PATIENT
  Age: 2 Year
  Sex: Male
  Weight: 10 kg

DRUGS (4)
  1. FENTANYL-100 [Suspect]
     Indication: ANAESTHESIA
     Dosage: 10 UG; INTRAVENOUS BOLUS
     Route: 040
  2. PROPOFOL [Concomitant]
  3. BUPIVACAINE [Concomitant]
  4. ISOFLURANE/NITROUS OXIDE [Concomitant]

REACTIONS (2)
  - MUSCLE RIGIDITY [None]
  - TACHYCARDIA [None]
